FAERS Safety Report 24987593 (Version 1)
Quarter: 2025Q1

REPORT INFORMATION
  Report Type: Spontaneous
  Country: FR (occurrence: FR)
  Receive Date: 20250219
  Receipt Date: 20250219
  Transmission Date: 20250409
  Serious: Yes (Hospitalization)
  Sender: PFIZER
  Company Number: None

PATIENT
  Age: 82 Year
  Sex: Female
  Weight: 72.8 kg

DRUGS (8)
  1. PIPERACILLIN SODIUM\TAZOBACTAM SODIUM [Suspect]
     Active Substance: PIPERACILLIN SODIUM\TAZOBACTAM SODIUM
     Indication: Vaginal fistula
     Dosage: 4.5 G, 3X/DAY
     Route: 042
     Dates: start: 20241202, end: 20241212
  2. PIPERACILLIN SODIUM\TAZOBACTAM SODIUM [Suspect]
     Active Substance: PIPERACILLIN SODIUM\TAZOBACTAM SODIUM
     Indication: Osteitis
  3. AMOXICILLIN [Suspect]
     Active Substance: AMOXICILLIN
     Indication: Vaginal fistula
     Dosage: 3 G, 1X/DAY
     Route: 042
     Dates: start: 20241216, end: 20241217
  4. AMOXICILLIN [Suspect]
     Active Substance: AMOXICILLIN
     Indication: Osteitis
  5. AUGMENTIN [Suspect]
     Active Substance: AMOXICILLIN\CLAVULANATE POTASSIUM
     Indication: Vaginal fistula
     Dosage: 3 G, 1X/DAY
     Route: 042
     Dates: start: 20241216, end: 20241217
  6. AUGMENTIN [Suspect]
     Active Substance: AMOXICILLIN\CLAVULANATE POTASSIUM
     Indication: Osteitis
  7. CIPROFLOXACIN HYDROCHLORIDE [Concomitant]
     Active Substance: CIPROFLOXACIN HYDROCHLORIDE
     Indication: Vaginal fistula
     Dosage: 500 MG, 1X/DAY
     Route: 048
     Dates: start: 20241218, end: 20241219
  8. CIPROFLOXACIN HYDROCHLORIDE [Concomitant]
     Active Substance: CIPROFLOXACIN HYDROCHLORIDE
     Indication: Osteitis

REACTIONS (4)
  - Lichenoid keratosis [Recovered/Resolved]
  - Toxic skin eruption [Recovered/Resolved]
  - Condition aggravated [Recovered/Resolved]
  - Off label use [Unknown]

NARRATIVE: CASE EVENT DATE: 20241202
